FAERS Safety Report 5923699-7 (Version None)
Quarter: 2008Q4

REPORT INFORMATION
  Report Type: 
  Country: None (occurrence: None)
  Receive Date: 20081020
  Receipt Date: 20081010
  Transmission Date: 20090506
  Serious: Yes (Hospitalization)
  Sender: FDA-Public Use
  Company Number: A0752416A

PATIENT
  Age: 70 Year
  Sex: Male
  Weight: 95.5 kg

DRUGS (5)
  1. AVANDIA [Suspect]
     Indication: DIABETES MELLITUS
     Route: 048
     Dates: start: 20010518, end: 20050101
  2. HUMULIN [Concomitant]
  3. NEURONTIN [Concomitant]
  4. VALIUM [Concomitant]
  5. AMBIEN [Concomitant]

REACTIONS (1)
  - MYOCARDIAL INFARCTION [None]
